FAERS Safety Report 5987731-7 (Version None)
Quarter: 2008Q4

REPORT INFORMATION
  Report Type: 
  Country: None (occurrence: None)
  Receive Date: 20081209
  Receipt Date: 20081201
  Transmission Date: 20090506
  Serious: Yes (Life-Threatening, Hospitalization)
  Sender: FDA-Public Use
  Company Number: IN-B.I. PHARMACEUTICALS,INC./RIDGEFIELD-2008-DE-07354GD

PATIENT

DRUGS (1)
  1. RANITIDINE [Suspect]

REACTIONS (1)
  - TOXIC EPIDERMAL NECROLYSIS [None]
